FAERS Safety Report 7034265-7 (Version None)
Quarter: 2010Q4

REPORT INFORMATION
  Report Type: 
  Country: None (occurrence: None)
  Receive Date: 20101008
  Receipt Date: 20101005
  Transmission Date: 20110411
  Serious: Yes (Hospitalization)
  Sender: FDA-Public Use
  Company Number: FR-WYE-G06772010

PATIENT
  Sex: Male
  Weight: 16 kg

DRUGS (3)
  1. IBUPROFEN (ADVIL) [Suspect]
     Dosage: UNKNOWN
     Route: 048
     Dates: start: 20100105, end: 20100110
  2. IBUPROFEN (ADVIL) [Suspect]
     Dosage: UNKNOWN
     Dates: start: 20100701, end: 20100701
  3. BACTRIM PAEDIATRIC [Suspect]
     Indication: STAPHYLOCOCCAL INFECTION
     Route: 048
     Dates: start: 20100105, end: 20100110

REACTIONS (3)
  - MYALGIA [None]
  - SYNOVITIS [None]
  - URTICARIA [None]
